FAERS Safety Report 13667286 (Version 11)
Quarter: 2018Q2

REPORT INFORMATION
  Report Type: Report from Study
  Country: BR (occurrence: BR)
  Receive Date: 20170619
  Receipt Date: 20180413
  Transmission Date: 20180711
  Serious: Yes (Life-Threatening, Other)
  Sender: FDA-Public Use
  Company Number: PHHY2017BR090009

PATIENT
  Age: 59 Year
  Sex: Female
  Weight: 68 kg

DRUGS (3)
  1. ESCITALOPRAM [Concomitant]
     Active Substance: ESCITALOPRAM OXALATE
     Indication: DEPRESSION
     Dosage: 1 DF, QD
     Route: 048
     Dates: start: 2009
  2. VALDOXAN [Concomitant]
     Active Substance: AGOMELATINE
     Indication: DEPRESSION
     Dosage: 1 DF, QD
     Route: 048
  3. SANDOSTATIN LAR DEPOT [Suspect]
     Active Substance: OCTREOTIDE ACETATE
     Indication: ACROMEGALY
     Dosage: 20 MG, QMO (ONCE A MONTH) (EVERY 30 DAYS)
     Route: 030
     Dates: start: 2011

REACTIONS (38)
  - Gait disturbance [Recovered/Resolved]
  - Crying [Unknown]
  - Fear [Unknown]
  - Product preparation error [Unknown]
  - Irritability [Recovering/Resolving]
  - Sluggishness [Recovering/Resolving]
  - Drug ineffective [Recovering/Resolving]
  - Cardiac valve disease [Recovering/Resolving]
  - Tendonitis [Unknown]
  - Neoplasm skin [Not Recovered/Not Resolved]
  - Headache [Not Recovered/Not Resolved]
  - Spinal pain [Unknown]
  - Musculoskeletal stiffness [Unknown]
  - Insomnia [Not Recovered/Not Resolved]
  - Injection site haematoma [Unknown]
  - Feeling abnormal [Unknown]
  - Arrhythmia [Recovering/Resolving]
  - Confusional state [Unknown]
  - Injection site pain [Unknown]
  - Hypertension [Recovering/Resolving]
  - Blood cholesterol increased [Recovering/Resolving]
  - Cholelithiasis [Recovering/Resolving]
  - Pain [Recovering/Resolving]
  - Joint swelling [Unknown]
  - Fatigue [Recovering/Resolving]
  - Depression [Recovering/Resolving]
  - Injection site bruising [Unknown]
  - Respiratory arrest [Recovering/Resolving]
  - Buttock injury [Not Recovered/Not Resolved]
  - Hormone level abnormal [Unknown]
  - Bursitis [Unknown]
  - Blood growth hormone increased [Unknown]
  - Apnoea [Recovering/Resolving]
  - Tumour pain [Not Recovered/Not Resolved]
  - Needle issue [Unknown]
  - Product size issue [Unknown]
  - Malaise [Unknown]
  - Injection site mass [Recovered/Resolved]

NARRATIVE: CASE EVENT DATE: 201801
